FAERS Safety Report 15983188 (Version 1)
Quarter: 2019Q1

REPORT INFORMATION
  Report Type: Spontaneous
  Country: US (occurrence: US)
  Receive Date: 20190220
  Receipt Date: 20190220
  Transmission Date: 20190418
  Serious: Yes (Life-Threatening, Other)
  Sender: FDA-Public Use
  Company Number: US-LUPIN PHARMACEUTICALS INC.-2019-00972

PATIENT
  Sex: Female
  Weight: 77.1 kg

DRUGS (3)
  1. AMLODIPINE BESYLATE TABLETS USP, 5 MG [Suspect]
     Active Substance: AMLODIPINE BESYLATE
     Indication: BLOOD PRESSURE ABNORMAL
     Dosage: 5 MILLIGRAM, QD
     Route: 048
     Dates: end: 20190201
  2. AMLODIPINE BESYLATE TABLETS USP, 5 MG [Suspect]
     Active Substance: AMLODIPINE BESYLATE
     Dosage: UNK (OLD TABLET)
     Route: 065
     Dates: start: 20190203
  3. AMLODIPINE BESYLATE TABLETS USP, 5 MG [Suspect]
     Active Substance: AMLODIPINE BESYLATE
     Dosage: UNK (OLD TABLET)
     Route: 065
     Dates: start: 20190202

REACTIONS (8)
  - Product taste abnormal [Unknown]
  - Dyspnoea [Not Recovered/Not Resolved]
  - Choking [Unknown]
  - Erythema [Recovered/Resolved]
  - Throat irritation [Unknown]
  - Myalgia [Not Recovered/Not Resolved]
  - Fatigue [Not Recovered/Not Resolved]
  - Pruritus [Recovered/Resolved]
